FAERS Safety Report 12269007 (Version 5)
Quarter: 2016Q3

REPORT INFORMATION
  Report Type: Spontaneous
  Country: US (occurrence: US)
  Receive Date: 20160414
  Receipt Date: 20160901
  Transmission Date: 20161109
  Serious: Yes (Hospitalization, Other)
  Sender: FDA-Public Use
  Company Number: US-PFIZER INC-2016206031

PATIENT
  Age: 67 Year
  Sex: Female
  Weight: 67 kg

DRUGS (7)
  1. FLUCONAZOLE. [Suspect]
     Active Substance: FLUCONAZOLE
     Dosage: 200 MG, 2X/DAY
     Route: 048
  2. CLONAZEPAM. [Concomitant]
     Active Substance: CLONAZEPAM
     Dosage: 0.5
     Dates: start: 2000
  3. ZONISAMIDE. [Concomitant]
     Active Substance: ZONISAMIDE
     Dosage: 100 MG, 4X/DAY
     Dates: start: 2000
  4. ARMOUR [Concomitant]
     Dosage: 120 MG, 1X/DAY
  5. FLUCONAZOLE. [Suspect]
     Active Substance: FLUCONAZOLE
     Dosage: 200 MG, 1X/DAY
     Route: 048
     Dates: start: 20130114, end: 20140321
  6. FLUCONAZOLE. [Suspect]
     Active Substance: FLUCONAZOLE
     Indication: FUNGAL INFECTION
     Dosage: 200 MG, 1X/DAY
     Route: 048
     Dates: start: 2014, end: 2016
  7. FLUCONAZOLE. [Suspect]
     Active Substance: FLUCONAZOLE
     Dosage: 200 MG, 1X/DAY
     Route: 048
     Dates: start: 20140421, end: 20151230

REACTIONS (14)
  - Periarthritis [Unknown]
  - Musculoskeletal discomfort [Unknown]
  - Epilepsy [Unknown]
  - Fear [Unknown]
  - Myocardial infarction [Unknown]
  - Cerebrovascular accident [Unknown]
  - Malaise [Unknown]
  - Alopecia [Unknown]
  - Cough [Unknown]
  - Intentional product use issue [Unknown]
  - Weight decreased [Unknown]
  - Pancreatitis [Unknown]
  - Seizure [Unknown]
  - Dyspnoea [Unknown]
